FAERS Safety Report 12888300 (Version 1)
Quarter: 2016Q4

REPORT INFORMATION
  Report Type: Spontaneous
  Country: GB (occurrence: GB)
  Receive Date: 20161027
  Receipt Date: 20161027
  Transmission Date: 20170207
  Serious: Yes (Life-Threatening)
  Sender: FDA-Public Use
  Company Number: GB-SUN PHARMACEUTICAL INDUSTRIES LTD-2016RR-126289

PATIENT
  Age: 60 Year
  Sex: Female
  Weight: 49 kg

DRUGS (1)
  1. AMOXICILLIN/CLAVULANIC ACID [Suspect]
     Active Substance: AMOXICILLIN\CLAVULANIC ACID
     Indication: SURGERY
     Dosage: 1.2 G
     Route: 042
     Dates: start: 20160408, end: 20160408

REACTIONS (2)
  - Circulatory collapse [Recovered/Resolved]
  - Anaphylactic reaction [Recovered/Resolved]

NARRATIVE: CASE EVENT DATE: 20160408
